APPROVED DRUG PRODUCT: ACCOLATE
Active Ingredient: ZAFIRLUKAST
Strength: 10MG
Dosage Form/Route: TABLET;ORAL
Application: N020547 | Product #003 | TE Code: AB
Applicant: STRIDES PHARMA INTERNATIONAL AG
Approved: Sep 17, 1999 | RLD: Yes | RS: No | Type: RX